FAERS Safety Report 23775144 (Version 2)
Quarter: 2024Q3

REPORT INFORMATION
  Report Type: Spontaneous
  Country: GB (occurrence: GB)
  Receive Date: 20240423
  Receipt Date: 20240918
  Transmission Date: 20241017
  Serious: Yes (Death)
  Sender: BAUSCH AND LOMB
  Company Number: GB-MLMSERVICE-20240408-PI017567-00117-1

PATIENT
  Age: 86 Year
  Sex: Male

DRUGS (1)
  1. DEXAMETHASONE [Suspect]
     Active Substance: DEXAMETHASONE
     Indication: Brain oedema
     Route: 048

REACTIONS (1)
  - Pulmonary nocardiosis [Fatal]
